FAERS Safety Report 22015657 (Version 1)
Quarter: 2023Q1

REPORT INFORMATION
  Report Type: Spontaneous
  Country: US (occurrence: US)
  Receive Date: 20230221
  Receipt Date: 20230221
  Transmission Date: 20230418
  Serious: Yes (Hospitalization, Other)
  Sender: FDA-Public Use
  Company Number: US-APOTEX-2023AP003602

PATIENT
  Age: 70 Year
  Sex: Male

DRUGS (2)
  1. GEMCITABINE [Suspect]
     Active Substance: GEMCITABINE
     Indication: Squamous cell carcinoma of lung
     Dosage: 1688 MILLIGRAM, Q.WK. (WITH A CUMULATIVE DOSE OF 13504 MG)
     Route: 065
  2. CISPLATIN [Suspect]
     Active Substance: CISPLATIN
     Indication: Squamous cell carcinoma of lung
     Dosage: 43 MILLIGRAM, Q.3W (WITH A CUMULATIVE DOSE OF 172 MG)
     Route: 065

REACTIONS (3)
  - Arteriospasm coronary [Recovering/Resolving]
  - Acute coronary syndrome [Recovering/Resolving]
  - Acute myocardial infarction [Recovering/Resolving]
